FAERS Safety Report 17268280 (Version 2)
Quarter: 2020Q1

REPORT INFORMATION
  Report Type: Spontaneous
  Country: GB (occurrence: GB)
  Receive Date: 20200114
  Receipt Date: 20200121
  Transmission Date: 20200409
  Serious: No
  Sender: FDA-Public Use
  Company Number: GB-LEXICON PHARMACEUTICALS, INC-20-1606-00018

PATIENT
  Sex: Male

DRUGS (1)
  1. XERMELO [Suspect]
     Active Substance: TELOTRISTAT ETHYL
     Indication: CARCINOID SYNDROME
     Dosage: DOSE NOT REPORTED
     Route: 065
     Dates: start: 20191126

REACTIONS (1)
  - Product dose omission [Recovered/Resolved]
